FAERS Safety Report 4348498-1 (Version None)
Quarter: 2004Q2

REPORT INFORMATION
  Report Type: 
  Country: None (occurrence: None)
  Receive Date: 20040423
  Receipt Date: 20040416
  Transmission Date: 20050107
  Serious: Yes (Other)
  Sender: FDA-Public Use
  Company Number: 200411120BCC

PATIENT
  Age: 49 Year
  Sex: Male
  Weight: 95.2554 kg

DRUGS (1)
  1. ALKA-SELTZER PLUS COLD [Suspect]
     Dosage: ORAL
     Route: 048

REACTIONS (1)
  - MYOCARDIAL INFARCTION [None]
